FAERS Safety Report 20977085 (Version 1)
Quarter: 2022Q2

REPORT INFORMATION
  Report Type: Spontaneous
  Country: CA (occurrence: CA)
  Receive Date: 20220617
  Receipt Date: 20220617
  Transmission Date: 20220721
  Serious: Yes (Death, Hospitalization, Other)
  Sender: FDA-Public Use
  Company Number: CA-NAPPMUNDI-GBR-2022-0099006

PATIENT
  Age: 73 Year
  Sex: Female

DRUGS (4)
  1. MORPHINE SULFATE [Suspect]
     Active Substance: MORPHINE SULFATE
     Indication: Product used for unknown indication
     Dosage: UNK
     Route: 065
  2. OMALIZUMAB [Suspect]
     Active Substance: OMALIZUMAB
     Indication: Chronic spontaneous urticaria
     Dosage: 300 MILLIGRAM (REPORTED 11 TIMES)
     Route: 058
  3. OMALIZUMAB [Suspect]
     Active Substance: OMALIZUMAB
     Dosage: 300 MILLIGRAM, MONTHLY
     Route: 058
  4. OMALIZUMAB [Suspect]
     Active Substance: OMALIZUMAB
     Dosage: 300 MILLIGRAM (REPORTED 2 TIMES)
     Route: 058

REACTIONS (11)
  - Death [Fatal]
  - Cataract [Fatal]
  - Drug hypersensitivity [Fatal]
  - Hepatic cirrhosis [Fatal]
  - Hepatic enzyme increased [Fatal]
  - Platelet count decreased [Fatal]
  - Product dose omission issue [Fatal]
  - Pruritus [Fatal]
  - Speech disorder [Fatal]
  - Urticaria [Fatal]
  - Wrong technique in product usage process [Fatal]
